FAERS Safety Report 21977255 (Version 2)
Quarter: 2023Q1

REPORT INFORMATION
  Report Type: Spontaneous
  Country: US (occurrence: US)
  Receive Date: 20230210
  Receipt Date: 20230301
  Transmission Date: 20230417
  Serious: Yes (Other)
  Sender: FDA-Public Use
  Company Number: US-MLMSERVICE-20230125-4062844-1

PATIENT
  Age: 50 Year
  Sex: Female

DRUGS (4)
  1. KENALOG [Suspect]
     Active Substance: TRIAMCINOLONE ACETONIDE
     Indication: Uveitis
     Dosage: SUB-TENON INJECTION OF KENALOG (TRIAMCINOLONE)
  2. PREDNISOLONE ACETATE [Suspect]
     Active Substance: PREDNISOLONE ACETATE
     Indication: Antiinflammatory therapy
     Dosage: TWICE A DAY
     Route: 061
  3. LOTEPREDNOL [Suspect]
     Active Substance: LOTEPREDNOL
     Indication: Antiinflammatory therapy
  4. ILEVRO [Concomitant]
     Active Substance: NEPAFENAC
     Indication: Antiinflammatory therapy
     Dosage: TWICE A DAY
     Route: 061

REACTIONS (2)
  - Open angle glaucoma [Recovered/Resolved]
  - Off label use [Unknown]
